FAERS Safety Report 7222139-8 (Version None)
Quarter: 2011Q1

REPORT INFORMATION
  Report Type: 
  Country: None (occurrence: None)
  Receive Date: 20110112
  Receipt Date: 20060908
  Transmission Date: 20110831
  Serious: Yes (Other)
  Sender: FDA-Public Use
  Company Number: PHHY2006US02703

PATIENT
  Sex: Male

DRUGS (1)
  1. LOTREL [Suspect]

REACTIONS (1)
  - CHOKING SENSATION [None]
